FAERS Safety Report 8691077 (Version 2)
Quarter: 2013Q4

REPORT INFORMATION
  Report Type: Spontaneous
  Country: GB (occurrence: GB)
  Receive Date: 20120730
  Receipt Date: 20131031
  Transmission Date: 20140711
  Serious: Yes (Disabling, Other)
  Sender: FDA-Public Use
  Company Number: GB-MSD-1207GBR006789

PATIENT
  Age: 40 Year
  Sex: Male
  Weight: 88.9 kg

DRUGS (1)
  1. PROSCAR 5 MG FILM-COATED TABLETS [Suspect]
     Indication: ALOPECIA
     Dosage: 1 MG, UNK
     Route: 048
     Dates: start: 20000701, end: 20040701

REACTIONS (5)
  - Chest pain [Recovered/Resolved]
  - Disturbance in attention [Unknown]
  - Pain in extremity [Recovered/Resolved]
  - Asthenia [Unknown]
  - Loss of libido [Recovering/Resolving]
